FAERS Safety Report 22641179 (Version 1)
Quarter: 2023Q2

REPORT INFORMATION
  Report Type: Spontaneous
  Country: PL (occurrence: PL)
  Receive Date: 20230626
  Receipt Date: 20230626
  Transmission Date: 20230721
  Serious: Yes (Hospitalization, Other)
  Sender: FDA-Public Use
  Company Number: PL-002147023-NVSC2023PL142485

PATIENT
  Sex: Female

DRUGS (3)
  1. RIBOCICLIB [Suspect]
     Active Substance: RIBOCICLIB
     Indication: Breast cancer
     Dosage: 400 MG, QD
     Route: 065
     Dates: start: 20221116
  2. RIBOCICLIB [Suspect]
     Active Substance: RIBOCICLIB
     Dosage: 200 MG, QD
     Route: 065
  3. FULVESTRANT [Suspect]
     Active Substance: FULVESTRANT
     Indication: Breast cancer
     Dosage: UNK
     Route: 065

REACTIONS (14)
  - Device related sepsis [Unknown]
  - Vomiting [Recovering/Resolving]
  - Ileus [Recovering/Resolving]
  - Pneumonia [Unknown]
  - Metastases to lung [Recovering/Resolving]
  - Metastases to bone [Recovering/Resolving]
  - Drug intolerance [Recovering/Resolving]
  - Pleural effusion [Unknown]
  - Malnutrition [Unknown]
  - Malaise [Recovering/Resolving]
  - Dyspnoea [Recovering/Resolving]
  - Anaemia [Unknown]
  - Asthenia [Recovering/Resolving]
  - Pyrexia [Recovering/Resolving]

NARRATIVE: CASE EVENT DATE: 20230201
